FAERS Safety Report 5357564-3 (Version None)
Quarter: 2007Q2

REPORT INFORMATION
  Report Type: 
  Country: None (occurrence: None)
  Receive Date: 20070530
  Receipt Date: 20070315
  Transmission Date: 20071010
  Serious: Yes (Other)
  Sender: FDA-Public Use
  Company Number: USA031152960

PATIENT
  Age: 38 Year
  Sex: Male
  Weight: 167.3 kg

DRUGS (7)
  1. ZYPREXA [Suspect]
     Indication: SCHIZOPHRENIA, PARANOID TYPE
     Dosage: 20 MG, EACH EVENING, ORAL
     Route: 048
     Dates: start: 19960101
  2. WELLBUTRIN (IBUPROFEN HYDROCHLORIDE) [Concomitant]
  3. LESCOL [Concomitant]
  4. TRIAMCINOLONE [Concomitant]
  5. TRICOR [Concomitant]
  6. LORATADINE [Concomitant]
  7. ALLOPURINOL [Concomitant]

REACTIONS (6)
  - AFFECT LABILITY [None]
  - ANXIETY [None]
  - PARANOIA [None]
  - PRESCRIBED OVERDOSE [None]
  - WEIGHT DECREASED [None]
  - WEIGHT INCREASED [None]
